FAERS Safety Report 4989454-X (Version None)
Quarter: 2006Q2

REPORT INFORMATION
  Report Type: 
  Country: None (occurrence: None)
  Receive Date: 20060502
  Receipt Date: 20050913
  Transmission Date: 20061013
  Serious: Yes (Hospitalization, Disabling)
  Sender: FDA-Public Use
  Company Number: US-MERCK-0509USA01808

PATIENT
  Age: 45 Year
  Sex: Female
  Weight: 68 kg

DRUGS (9)
  1. VIOXX [Suspect]
     Indication: PAIN
     Route: 048
     Dates: start: 20010726, end: 20021001
  2. FEOSOL [Concomitant]
     Route: 065
  3. HYDROXYZINE HYDROCHLORIDE [Concomitant]
     Route: 065
  4. PREMARIN [Concomitant]
     Route: 065
  5. GEN-MEDROXY [Concomitant]
     Route: 065
  6. RANITIDINE [Concomitant]
     Route: 048
  7. ULTRAM [Concomitant]
     Route: 048
  8. RELAFEN [Concomitant]
     Route: 048
  9. LIPITOR [Concomitant]
     Route: 048

REACTIONS (30)
  - ANGINA PECTORIS [None]
  - ANGINA UNSTABLE [None]
  - APHASIA [None]
  - ARTERIAL STENOSIS [None]
  - BONE PAIN [None]
  - CAROTID ARTERY ATHEROMA [None]
  - CEREBRAL THROMBOSIS [None]
  - CEREBROVASCULAR ACCIDENT [None]
  - CHEST PAIN [None]
  - CORONARY ARTERY STENOSIS [None]
  - DEPRESSION [None]
  - DIVERTICULUM [None]
  - EMOTIONAL DISTRESS [None]
  - FALL [None]
  - FLATULENCE [None]
  - GASTROOESOPHAGEAL REFLUX DISEASE [None]
  - HEADACHE [None]
  - HIATUS HERNIA [None]
  - LACERATION [None]
  - MYOCARDIAL INFARCTION [None]
  - MYOCARDIAL ISCHAEMIA [None]
  - NECK INJURY [None]
  - NECK PAIN [None]
  - PAIN IN EXTREMITY [None]
  - SCOLIOSIS [None]
  - SHOULDER PAIN [None]
  - SPINAL OSTEOARTHRITIS [None]
  - SYNCOPE [None]
  - TRANSIENT ISCHAEMIC ATTACK [None]
  - URINARY TRACT INFECTION [None]
